FAERS Safety Report 22116371 (Version 2)
Quarter: 2023Q1

REPORT INFORMATION
  Report Type: Spontaneous
  Country: US (occurrence: US)
  Receive Date: 20230320
  Receipt Date: 20230330
  Transmission Date: 20230417
  Serious: No
  Sender: FDA-Public Use
  Company Number: US-SA-SAC20230315000895

PATIENT

DRUGS (2)
  1. LARONIDASE [Suspect]
     Active Substance: LARONIDASE
     Indication: Mucopolysaccharidosis I
     Dosage: 26.1 (UNITS NOT PROVIDED), QW
     Route: 042
     Dates: start: 20200529
  2. LARONIDASE [Suspect]
     Active Substance: LARONIDASE
     Dosage: 28.1 MG
     Route: 042

REACTIONS (2)
  - Pain in jaw [Unknown]
  - Tooth fracture [Unknown]
